FAERS Safety Report 9303941 (Version 1)
Quarter: 2013Q2

REPORT INFORMATION
  Report Type: Spontaneous
  Country: US (occurrence: None)
  Receive Date: 20130520
  Receipt Date: 20130520
  Transmission Date: 20140414
  Serious: Yes (Other)
  Sender: FDA-Public Use
  Company Number: 1718980

PATIENT
  Sex: Female

DRUGS (6)
  1. CARBOPLATIN [Suspect]
     Indication: OVARIAN CANCER
     Dosage: 6 TIMES AREA UNDER THE CURVE
  2. PACLITAXEL [Suspect]
     Indication: OVARIAN CANCER
  3. VORINOSTAT [Suspect]
     Indication: OVARIAN CANCER
  4. DIPHENHYDRAMINE [Concomitant]
  5. ANTIHISTAMINES [Concomitant]
  6. DEXAMETHASONE [Concomitant]

REACTIONS (2)
  - Anastomotic complication [None]
  - Abdominal abscess [None]
